APPROVED DRUG PRODUCT: QUINALAN
Active Ingredient: QUINIDINE GLUCONATE
Strength: 324MG
Dosage Form/Route: TABLET, EXTENDED RELEASE;ORAL
Application: A088081 | Product #001
Applicant: CHARTWELL MOLECULAR HOLDINGS LLC
Approved: Feb 10, 1986 | RLD: No | RS: No | Type: DISCN